FAERS Safety Report 8463753-1 (Version None)
Quarter: 2012Q2

REPORT INFORMATION
  Report Type: 
  Country: None (occurrence: None)
  Receive Date: 20120625
  Receipt Date: 20120612
  Transmission Date: 20120825
  Serious: Yes (Death)
  Sender: FDA-Public Use
  Company Number: RU-SANOFI-AVENTIS-2012SA042613

PATIENT
  Age: 61 Year
  Sex: Female
  Weight: 72 kg

DRUGS (4)
  1. DOCETAXEL [Suspect]
     Route: 042
     Dates: start: 20120524, end: 20120524
  2. DOCETAXEL [Suspect]
     Route: 042
     Dates: start: 20110615, end: 20110615
  3. BLINDED THERAPY [Suspect]
     Route: 065
     Dates: start: 20110615
  4. BLINDED THERAPY [Suspect]
     Route: 065
     Dates: end: 20120524

REACTIONS (1)
  - DEATH [None]
